FAERS Safety Report 11646451 (Version 1)
Quarter: 2015Q4

REPORT INFORMATION
  Report Type: Spontaneous
  Country: US (occurrence: US)
  Receive Date: 20151020
  Receipt Date: 20151020
  Transmission Date: 20160304
  Serious: No
  Sender: FDA-Public Use
  Company Number: US-ROCHE-ITM201505IM015962

PATIENT
  Age: 85 Year
  Sex: Female
  Weight: 67.65 kg

DRUGS (3)
  1. ESBRIET [Suspect]
     Active Substance: PIRFENIDONE
     Indication: IDIOPATHIC PULMONARY FIBROSIS
     Route: 048
     Dates: start: 201502
  2. WARFARIN [Concomitant]
     Active Substance: WARFARIN
  3. ESBRIET [Suspect]
     Active Substance: PIRFENIDONE
     Dosage: 3 CAPSULES 3 TIMES A DAY, SHIPPED ON 15/APR/2015
     Route: 048
     Dates: start: 20150415

REACTIONS (6)
  - Dyspnoea [Unknown]
  - Fatigue [Not Recovered/Not Resolved]
  - Fatigue [Recovering/Resolving]
  - Cognitive disorder [Unknown]
  - Hypersensitivity [Unknown]
  - Gastric disorder [Not Recovered/Not Resolved]

NARRATIVE: CASE EVENT DATE: 201504
